FAERS Safety Report 9443647 (Version 3)
Quarter: 2014Q1

REPORT INFORMATION
  Report Type: Spontaneous
  Country: FR (occurrence: FR)
  Receive Date: 20130806
  Receipt Date: 20140205
  Transmission Date: 20141002
  Serious: Yes (Hospitalization, Disabling)
  Sender: FDA-Public Use
  Company Number: FR-ASTRAZENECA-2001CG00486

PATIENT
  Age: 387 Month
  Sex: Female

DRUGS (3)
  1. ZOMIG [Suspect]
     Indication: MIGRAINE
     Dosage: IN TOTAL 6 TO 7 BOX OF ZOMIG AT A DOSE OF ONE TO TWO TABLETS PER DAY OR EVERY FEW DAYS
     Route: 048
     Dates: start: 200006
  2. ZOMIG [Suspect]
     Indication: MIGRAINE
     Dosage: SOMETIMES A DOSE UPPER THAN THE DOSE RECOMMENDED
     Route: 048
  3. ZOMIG [Suspect]
     Indication: MIGRAINE
     Route: 048
     Dates: end: 200009

REACTIONS (5)
  - Optic neuropathy [Not Recovered/Not Resolved]
  - Visual acuity reduced [Not Recovered/Not Resolved]
  - Visual field defect [Not Recovered/Not Resolved]
  - Condition aggravated [Not Recovered/Not Resolved]
  - Paraesthesia [Not Recovered/Not Resolved]
